FAERS Safety Report 20419821 (Version 3)
Quarter: 2022Q1

REPORT INFORMATION
  Report Type: Spontaneous
  Country: TR (occurrence: None)
  Receive Date: 20220203
  Receipt Date: 20220223
  Transmission Date: 20220423
  Serious: Yes (Other)
  Sender: FDA-Public Use
  Company Number: TR-Orion Corporation ORION PHARMA-ENTC2022-0029

PATIENT
  Age: 74 Year
  Sex: Male

DRUGS (2)
  1. STALEVO [Suspect]
     Active Substance: CARBIDOPA\ENTACAPONE\LEVODOPA
     Indication: Parkinson^s disease
     Dosage: DOSE: 100-150 MG EVERY 4 HOURS AND 200 MG BEFORE BEDTIME
     Route: 065
     Dates: start: 2018, end: 2019
  2. STALEVO [Suspect]
     Active Substance: CARBIDOPA\ENTACAPONE\LEVODOPA
     Route: 065

REACTIONS (5)
  - Parkinson^s disease [Unknown]
  - Paralysis [Unknown]
  - Cerebral thrombosis [Unknown]
  - Product supply issue [Unknown]
  - Decubitus ulcer [Unknown]
